FAERS Safety Report 19512236 (Version 2)
Quarter: 2021Q4

REPORT INFORMATION
  Report Type: Spontaneous
  Country: US (occurrence: US)
  Receive Date: 20210709
  Receipt Date: 20211001
  Transmission Date: 20220303
  Serious: Yes (Hospitalization)
  Sender: FDA-Public Use
  Company Number: US-DRREDDYS-SPO/USA/21/0137369

PATIENT
  Age: 56 Year
  Sex: Female

DRUGS (2)
  1. TESTOSTERONE [Suspect]
     Active Substance: TESTOSTERONE
     Indication: Supplementation therapy
     Dosage: ORAL/TOPICAL TESTOSTERONE THERAPY (ALMOST 40-YEAR USE OF TESTOSTERONE)
  2. TESTOSTERONE [Suspect]
     Active Substance: TESTOSTERONE
     Dosage: ORAL/TOPICAL TESTOSTERONE THERAPY (ALMOST 40-YEAR USE OF TESTOSTERONE)

REACTIONS (4)
  - Renal artery fibromuscular dysplasia [Recovering/Resolving]
  - Hypertensive emergency [Recovered/Resolved]
  - Carotid arteriosclerosis [Recovering/Resolving]
  - Left ventricular hypertrophy [Recovering/Resolving]
